FAERS Safety Report 6170853-8 (Version None)
Quarter: 2009Q2

REPORT INFORMATION
  Report Type: 
  Country: None (occurrence: None)
  Receive Date: 20090427
  Receipt Date: 20090409
  Transmission Date: 20091009
  Serious: Yes (Death, Hospitalization)
  Sender: FDA-Public Use
  Company Number: ADE# 09-059DPR

PATIENT
  Age: 82 Year
  Sex: Female

DRUGS (3)
  1. DIGOXIN [Suspect]
     Indication: ATRIAL FIBRILLATION
     Dosage: 5-10 YEARS AGO
     Dates: end: 20090209
  2. NORVASC [Concomitant]
  3. UNSPECIFIED VITAMINS [Concomitant]

REACTIONS (1)
  - CEREBROVASCULAR ACCIDENT [None]
